FAERS Safety Report 24903919 (Version 2)
Quarter: 2025Q1

REPORT INFORMATION
  Report Type: Report from Study
  Country: US (occurrence: US)
  Receive Date: 20250130
  Receipt Date: 20250306
  Transmission Date: 20250408
  Serious: Yes (Other)
  Sender: ABBVIE
  Company Number: US-ABBVIE-6107933

PATIENT
  Sex: Male

DRUGS (1)
  1. RINVOQ [Suspect]
     Active Substance: UPADACITINIB
     Indication: Rheumatoid arthritis
     Route: 048
     Dates: start: 20231219, end: 202412

REACTIONS (10)
  - Temporomandibular pain and dysfunction syndrome [Recovering/Resolving]
  - Musculoskeletal disorder [Unknown]
  - Cough [Unknown]
  - Vomiting [Unknown]
  - Hallucination [Unknown]
  - Viral infection [Recovering/Resolving]
  - Blood pressure increased [Unknown]
  - Grip strength decreased [Not Recovered/Not Resolved]
  - Trigger finger [Not Recovered/Not Resolved]
  - Pyrexia [Unknown]
